FAERS Safety Report 15725260 (Version 1)
Quarter: 2018Q4

REPORT INFORMATION
  Report Type: Spontaneous
  Country: CR (occurrence: CR)
  Receive Date: 20181215
  Receipt Date: 20181215
  Transmission Date: 20190205
  Serious: Yes (Other)
  Sender: FDA-Public Use
  Company Number: CR-ROCHE-2096705

PATIENT
  Age: 50 Year
  Sex: Female

DRUGS (1)
  1. KADCYLA [Suspect]
     Active Substance: ADO-TRASTUZUMAB EMTANSINE
     Indication: HER-2 POSITIVE BREAST CANCER
     Route: 065

REACTIONS (3)
  - Myalgia [Recovering/Resolving]
  - Rheumatoid arthritis [Unknown]
  - Pyrexia [Recovering/Resolving]
